FAERS Safety Report 9355740 (Version 1)
Quarter: 2013Q2

REPORT INFORMATION
  Report Type: Spontaneous
  Country: US (occurrence: US)
  Receive Date: 20130619
  Receipt Date: 20130619
  Transmission Date: 20140414
  Serious: No
  Sender: FDA-Public Use
  Company Number: US-PFIZER INC-2013180931

PATIENT
  Age: 83 Year
  Sex: Female
  Weight: 65.31 kg

DRUGS (8)
  1. ZYVOX [Suspect]
     Indication: CYSTITIS
     Dosage: 600 MG, DAILY
     Dates: start: 20130303, end: 20130307
  2. ZYVOX [Suspect]
     Dosage: 600 MG, DAILY
     Dates: start: 20130507
  3. HYZAAR [Concomitant]
     Indication: HYPERTENSION
     Dosage: 125, DAILY
     Route: 048
  4. POTASSIUM CHLORIDE [Concomitant]
     Indication: BLOOD POTASSIUM DECREASED
     Dosage: 20 MEQ, 2X/DAY
  5. SYNTHROID [Concomitant]
     Indication: HYPOTHYROIDISM
     Dosage: 50 UG, DAILY
  6. COMBIVENT [Concomitant]
     Indication: COUGH
     Dosage: UNK
     Route: 055
  7. ASTEPRO [Concomitant]
     Indication: NASAL CONGESTION
     Dosage: UNK
     Route: 045
  8. ACIPHEX [Concomitant]
     Indication: GASTROOESOPHAGEAL REFLUX DISEASE
     Dosage: 20 MG, DAILY

REACTIONS (1)
  - Drug ineffective [Unknown]
